FAERS Safety Report 4736500-4 (Version None)
Quarter: 2005Q3

REPORT INFORMATION
  Report Type: 
  Country: None (occurrence: None)
  Receive Date: 20050808
  Receipt Date: 20050425
  Transmission Date: 20060218
  Serious: Yes (Hospitalization, Disabling, Other)
  Sender: FDA-Public Use
  Company Number: DE-AMGEN-UK128748

PATIENT
  Age: 75 Year
  Sex: Male
  Weight: 88.5 kg

DRUGS (12)
  1. MIMPARA [Suspect]
     Indication: HYPERPARATHYROIDISM SECONDARY
     Route: 048
     Dates: start: 20050304, end: 20050423
  2. CONCOR [Concomitant]
     Dates: start: 20050201
  3. ATACAND [Concomitant]
     Dates: start: 20040701
  4. VITAMIN D [Concomitant]
     Dates: start: 20000101
  5. CALCIUM ACETATE [Concomitant]
     Dates: start: 20021201
  6. FUROSEMIDE [Concomitant]
     Dates: start: 20010101
  7. RENAGEL [Concomitant]
     Dates: start: 20040101
  8. DREISAVIT [Concomitant]
     Dates: start: 20030701
  9. ATORVASTATIN CALCIUM [Concomitant]
     Dates: start: 20001001
  10. ASPIRIN [Concomitant]
     Dates: start: 20030601
  11. TRAMADOL HCL [Concomitant]
     Dates: start: 20050201
  12. NEXIUM [Concomitant]
     Dates: start: 20010901

REACTIONS (5)
  - ARTERIOSCLEROSIS [None]
  - BLINDNESS [None]
  - BLINDNESS UNILATERAL [None]
  - OPTIC ISCHAEMIC NEUROPATHY [None]
  - VASCULITIS [None]
